FAERS Safety Report 23286078 (Version 1)
Quarter: 2023Q4

REPORT INFORMATION
  Report Type: Spontaneous
  Country: NL (occurrence: NL)
  Receive Date: 20231212
  Receipt Date: 20231212
  Transmission Date: 20240110
  Serious: Yes (Other)
  Sender: FDA-Public Use
  Company Number: None

PATIENT

DRUGS (1)
  1. MALARONE [Suspect]
     Active Substance: ATOVAQUONE\PROGUANIL HYDROCHLORIDE
     Indication: Malaria prophylaxis
     Dosage: 1 DF, QD
     Route: 065
     Dates: start: 20231017, end: 20231114

REACTIONS (2)
  - Atrial fibrillation [Recovering/Resolving]
  - Fatigue [Recovering/Resolving]
